FAERS Safety Report 7126169-6 (Version None)
Quarter: 2010Q4

REPORT INFORMATION
  Report Type: 
  Country: None (occurrence: None)
  Receive Date: 20101112
  Receipt Date: 20101028
  Transmission Date: 20110411
  Serious: No
  Sender: FDA-Public Use
  Company Number: ADR-5019-012

PATIENT
  Age: 68 Year
  Sex: Male
  Weight: 90.7194 kg

DRUGS (3)
  1. HYDRALAZINE HCL [Suspect]
     Indication: BLOOD PRESSURE ABNORMAL
     Dosage: 10 MG TID, ORAL
     Route: 048
     Dates: start: 20100325
  2. CARVEDILIL [Concomitant]
  3. SIMVASTATIN [Concomitant]

REACTIONS (2)
  - ERECTILE DYSFUNCTION [None]
  - UNEVALUABLE EVENT [None]
